FAERS Safety Report 12922665 (Version 1)
Quarter: 2016Q4

REPORT INFORMATION
  Report Type: Spontaneous
  Country: US (occurrence: US)
  Receive Date: 20161108
  Receipt Date: 20161108
  Transmission Date: 20170207
  Serious: Yes (Life-Threatening)
  Sender: FDA-Public Use
  Company Number: None

PATIENT
  Age: 24 Year
  Sex: Female
  Weight: 64.8 kg

DRUGS (1)
  1. MEDROXYPROGESTE-RONE [Suspect]
     Active Substance: MEDROXYPROGESTERONE
     Indication: CONTRACEPTION
     Dosage: OTHER FREQUENCY:EVERY 3 MONTHS; INTRAMUSCULAR; 150 MG/KG?
     Route: 030
     Dates: start: 20161107, end: 20161107

REACTIONS (2)
  - Hypersensitivity [None]
  - Product quality issue [None]

NARRATIVE: CASE EVENT DATE: 20161107
